FAERS Safety Report 6113234-5 (Version None)
Quarter: 2009Q1

REPORT INFORMATION
  Report Type: 
  Country: None (occurrence: None)
  Receive Date: 20090312
  Receipt Date: 20090306
  Transmission Date: 20090719
  Serious: Yes (Other)
  Sender: FDA-Public Use
  Company Number: US-ASTRAZENECA-2009UW06132

PATIENT
  Sex: Female
  Weight: 99.8 kg

DRUGS (5)
  1. NEXIUM [Suspect]
     Route: 048
     Dates: start: 20040101
  2. ALLEGRA D 24 HOUR [Concomitant]
  3. THYROID TAB [Concomitant]
  4. ALEVE [Concomitant]
  5. HERBAL SUPPLEMENTS [Concomitant]

REACTIONS (7)
  - CARDIAC DISORDER [None]
  - CARDIAC PACEMAKER INSERTION [None]
  - CATHETERISATION CARDIAC [None]
  - ELECTROENCEPHALOGRAM ABNORMAL [None]
  - HIATUS HERNIA [None]
  - OEDEMA [None]
  - SKIN ULCER [None]
